FAERS Safety Report 6480003-6 (Version None)
Quarter: 2009Q4

REPORT INFORMATION
  Report Type: 
  Country: None (occurrence: None)
  Receive Date: 20091208
  Receipt Date: 20091124
  Transmission Date: 20100525
  Serious: Yes (Hospitalization)
  Sender: FDA-Public Use
  Company Number: JP-SANOFI-AVENTIS-A01200910518

PATIENT
  Age: 53 Year
  Sex: Female
  Weight: 78 kg

DRUGS (6)
  1. ZOLPIDEM TARTRATE [Suspect]
     Indication: INSOMNIA
     Dosage: LARGE DOSES ROUTINELY.
     Route: 048
     Dates: end: 20041213
  2. ZOLPIDEM TARTRATE [Suspect]
     Dosage: LARGE DOSES ROUTINELY.
     Route: 048
     Dates: end: 20041213
  3. MEILAX [Suspect]
     Indication: DRUG USE FOR UNKNOWN INDICATION
     Dosage: LARGE DOSES ROUTINELY.
     Route: 048
     Dates: end: 20041213
  4. MEILAX [Suspect]
     Indication: DRUG ABUSE
     Dosage: LARGE DOSES ROUTINELY.
     Route: 048
     Dates: end: 20041213
  5. CERCINE [Suspect]
     Indication: DRUG USE FOR UNKNOWN INDICATION
     Dosage: LARGE DOSES ROUTINELY.
     Route: 048
     Dates: end: 20041213
  6. CERCINE [Suspect]
     Indication: DRUG ABUSE
     Dosage: LARGE DOSES ROUTINELY.
     Route: 048
     Dates: end: 20041213

REACTIONS (4)
  - ALTERED STATE OF CONSCIOUSNESS [None]
  - DRUG ABUSE [None]
  - RENAL FAILURE ACUTE [None]
  - RHABDOMYOLYSIS [None]
